FAERS Safety Report 6006934-9 (Version None)
Quarter: 2008Q4

REPORT INFORMATION
  Report Type: 
  Country: None (occurrence: None)
  Receive Date: 20081217
  Receipt Date: 20071126
  Transmission Date: 20090506
  Serious: No
  Sender: FDA-Public Use
  Company Number: US-ASTRAZENECA-2007UW26976

PATIENT
  Age: 93 Year
  Sex: Female
  Weight: 53.1 kg

DRUGS (11)
  1. CRESTOR [Suspect]
     Route: 048
     Dates: start: 20060101
  2. SYNTHROID [Concomitant]
  3. ISOSORBIDE [Concomitant]
  4. METOPROLOL TARTRATE [Concomitant]
  5. ASPIRIN [Concomitant]
  6. FUROSEMIDE [Concomitant]
     Dosage: 3 TIMES/WK.
  7. FOLIC ACID [Concomitant]
  8. VITAMIN B6 [Concomitant]
  9. VITAMIN B-12 [Concomitant]
  10. CRANBERRY [Concomitant]
  11. MULTI-VITAMIN [Concomitant]

REACTIONS (1)
  - LIP SWELLING [None]
